FAERS Safety Report 15923687 (Version 1)
Quarter: 2019Q1

REPORT INFORMATION
  Report Type: Spontaneous
  Country: US (occurrence: US)
  Receive Date: 20190206
  Receipt Date: 20190206
  Transmission Date: 20190417
  Serious: Yes (Death, Other)
  Sender: FDA-Public Use
  Company Number: US-CONCORDIA PHARMACEUTICALS INC.-GSH201901-000180

PATIENT
  Age: 33 Year
  Sex: Female

DRUGS (4)
  1. ZONISAMIDE. [Suspect]
     Active Substance: ZONISAMIDE
     Dates: start: 20181225
  2. ZONISAMIDE. [Suspect]
     Active Substance: ZONISAMIDE
     Indication: EPILEPSY
     Dates: start: 20180605, end: 20180821
  3. ZONISAMIDE. [Suspect]
     Active Substance: ZONISAMIDE
     Dates: start: 20180821, end: 20181225
  4. PRENATAL VITAMINS + FOLIC ACID [Concomitant]
     Indication: PREGNANCY

REACTIONS (2)
  - Stillbirth [Not Recovered/Not Resolved]
  - Exposure during pregnancy [Unknown]

NARRATIVE: CASE EVENT DATE: 20190109
